FAERS Safety Report 7311137-1 (Version None)
Quarter: 2011Q1

REPORT INFORMATION
  Report Type: 
  Country: None (occurrence: None)
  Receive Date: 20110224
  Receipt Date: 20110217
  Transmission Date: 20110831
  Serious: Yes (Hospitalization)
  Sender: FDA-Public Use
  Company Number: JP-ROCHE-758706

PATIENT
  Sex: Male
  Weight: 57 kg

DRUGS (3)
  1. PEGINTERFERON ALFA-2A [Suspect]
     Dosage: DOSAGE FORM: INJECTION
     Route: 058
     Dates: start: 20100914
  2. RIBAVIRIN [Suspect]
     Route: 048
     Dates: start: 20100914
  3. URSO 250 [Concomitant]
     Route: 048

REACTIONS (1)
  - SKIN ULCER [None]
